FAERS Safety Report 20253454 (Version 3)
Quarter: 2022Q4

REPORT INFORMATION
  Report Type: Other
  Country: US (occurrence: None)
  Receive Date: 20211230
  Receipt Date: 20221112
  Transmission Date: 20230112
  Serious: Yes (Hospitalization)
  Sender: FDA-Public Use
  Company Number: US-ROCHE-2984766

PATIENT
  Age: 73 Year
  Sex: Male
  Weight: 88.530 kg

DRUGS (2)
  1. OCREVUS [Suspect]
     Active Substance: OCRELIZUMAB
     Indication: Multiple sclerosis
     Dosage: DATE OF TREATMENT: 10/DEC/2019, 26/NOV/2019, 29/JUN/2020, 18/DEC/2020, 09/JUN/2021, 15/DEC/2021,
     Route: 065
  2. COPAXONE [Concomitant]
     Active Substance: GLATIRAMER ACETATE

REACTIONS (3)
  - COVID-19 [Recovered/Resolved]
  - Gait inability [Not Recovered/Not Resolved]
  - Fall [Unknown]

NARRATIVE: CASE EVENT DATE: 20210311
